FAERS Safety Report 17867154 (Version 2)
Quarter: 2020Q2

REPORT INFORMATION
  Report Type: Spontaneous
  Country: DE (occurrence: DE)
  Receive Date: 20200605
  Receipt Date: 20200618
  Transmission Date: 20200714
  Serious: Yes (Life-Threatening, Hospitalization, Other)
  Sender: FDA-Public Use
  Company Number: DE-SA-2020SA143470

PATIENT

DRUGS (10)
  1. TAFLUPROST [Concomitant]
     Active Substance: TAFLUPROST
     Dosage: 15 MICROG/ML 0-0-1
     Route: 065
  2. GINKGO [Concomitant]
     Active Substance: GINKGO
     Dosage: 200 MG 1X1 EVERY 2 DAYS
     Route: 065
  3. ATROPINE SULFATE. [Suspect]
     Active Substance: ATROPINE SULFATE
     Indication: BRADYCARDIA
     Route: 065
  4. BISOPROLOL SALT NOT SPECIFIED [Interacting]
     Active Substance: BISOPROLOL
     Dosage: 5 MILLIGRAM DAILY; 1-0-0
     Route: 065
  5. DRONEDARONE [Suspect]
     Active Substance: DRONEDARONE
     Indication: ATRIAL FIBRILLATION
     Dosage: 800 MILLIGRAM DAILY
     Route: 065
  6. RIVAROXABAN [Concomitant]
     Active Substance: RIVAROXABAN
     Dosage: 1-0-0
     Route: 065
  7. TIMOLOL MALEATE. [Interacting]
     Active Substance: TIMOLOL MALEATE
     Dosage: 0-0-1
     Route: 065
  8. CANDESARTAN. [Concomitant]
     Active Substance: CANDESARTAN
     Dosage: 1-0-0
     Route: 065
  9. AMLODIPINE [Interacting]
     Active Substance: AMLODIPINE BESYLATE
     Dosage: 1-0-0
     Route: 065
  10. ALFUZOSIN [Concomitant]
     Active Substance: ALFUZOSIN
     Dosage: 1-0-0
     Route: 065

REACTIONS (9)
  - Atrioventricular block second degree [Recovered/Resolved]
  - Systolic dysfunction [Recovered/Resolved]
  - Drug ineffective [Unknown]
  - Bradycardia [Recovered/Resolved]
  - Diastolic dysfunction [Recovered/Resolved]
  - Atrioventricular block [Recovered/Resolved]
  - Cardiovascular insufficiency [Recovered/Resolved]
  - Drug interaction [Unknown]
  - Ventricular hypertrophy [Recovered/Resolved]
